FAERS Safety Report 7589888-3 (Version None)
Quarter: 2011Q3

REPORT INFORMATION
  Report Type: 
  Country: None (occurrence: None)
  Receive Date: 20110705
  Receipt Date: 20110621
  Transmission Date: 20111222
  Serious: Yes (Hospitalization, Other)
  Sender: FDA-Public Use
  Company Number: SE-ABBOTT-11P-150-0734418-00

PATIENT
  Sex: Female

DRUGS (4)
  1. ZEMPLAR [Suspect]
     Indication: RENAL FAILURE CHRONIC
     Dosage: DAILY DOSE: STARTING- 1 MCG
     Route: 048
     Dates: start: 20110421
  2. ZEMPLAR [Suspect]
     Indication: BLOOD PARATHYROID HORMONE INCREASED
  3. ZEMPLAR [Suspect]
     Indication: PROPHYLAXIS
  4. ZEMPLAR [Suspect]
     Indication: RENAL DISORDER

REACTIONS (1)
  - APPENDICITIS [None]
